FAERS Safety Report 11915227 (Version 1)
Quarter: 2016Q1

REPORT INFORMATION
  Report Type: Other
  Country: JP (occurrence: JP)
  Receive Date: 20160114
  Receipt Date: 20160114
  Transmission Date: 20160526
  Serious: Yes (Other)
  Sender: FDA-Public Use
  Company Number: JP-ACTELION-A-CH2016-129765

PATIENT
  Age: 4 Year
  Sex: Male

DRUGS (3)
  1. OXYGEN. [Concomitant]
     Active Substance: OXYGEN
  2. SILDENAFIL. [Concomitant]
     Active Substance: SILDENAFIL
     Route: 048
  3. TRACLEER [Suspect]
     Active Substance: BOSENTAN
     Indication: PORTOPULMONARY HYPERTENSION
     Dosage: UNK
     Route: 048

REACTIONS (3)
  - Pulmonary hypertensive crisis [Recovered/Resolved]
  - Biopsy liver [Unknown]
  - Venous ligation [Recovered/Resolved]
